FAERS Safety Report 19786765 (Version 2)
Quarter: 2021Q3

REPORT INFORMATION
  Report Type: Spontaneous
  Country: US (occurrence: US)
  Receive Date: 20210903
  Receipt Date: 20210914
  Transmission Date: 20211014
  Serious: Yes (Other)
  Sender: FDA-Public Use
  Company Number: US-PFIZER INC-202101109984

PATIENT
  Age: 61 Year
  Sex: Female
  Weight: 72.12 kg

DRUGS (1)
  1. LYRICA [Suspect]
     Active Substance: PREGABALIN
     Indication: PAIN
     Dosage: 75 MG, 2X/DAY (75MG TWICE A DAY BY MOUTH)
     Route: 048

REACTIONS (18)
  - Blindness [Unknown]
  - Confusional state [Unknown]
  - Dyspnoea [Unknown]
  - Dizziness [Unknown]
  - Paralysis [Unknown]
  - Cognitive disorder [Unknown]
  - Tremor [Unknown]
  - Malaise [Unknown]
  - Blood glucose decreased [Unknown]
  - Hypoglycaemia [Unknown]
  - Cerebrovascular accident [Unknown]
  - Brain injury [Unknown]
  - Feeling abnormal [Unknown]
  - Intentional product misuse [Unknown]
  - Product dose omission issue [Unknown]
  - Anxiety [Unknown]
  - Nervousness [Unknown]
  - Lethargy [Unknown]

NARRATIVE: CASE EVENT DATE: 20210825
